FAERS Safety Report 22319602 (Version 1)
Quarter: 2023Q2

REPORT INFORMATION
  Report Type: Spontaneous
  Country: US (occurrence: None)
  Receive Date: 20230512
  Receipt Date: 20230512
  Transmission Date: 20230722
  Serious: Yes (Death)
  Sender: FDA-Public Use
  Company Number: None

PATIENT
  Age: 87 Year
  Sex: Male
  Weight: 94.8 kg

DRUGS (7)
  1. ABIRATERONE [Suspect]
     Active Substance: ABIRATERONE
     Indication: Prostate cancer
     Dosage: FREQUENCY : DAILY;?
     Route: 048
  2. LUPRON DEPOT [Concomitant]
  3. POTASSIUM [Concomitant]
     Active Substance: POTASSIUM
  4. PREDNISONE [Concomitant]
     Active Substance: PREDNISONE
  5. PROCHLORPERAZINE [Concomitant]
     Active Substance: PROCHLORPERAZINE
  6. XTANDI [Concomitant]
     Active Substance: ENZALUTAMIDE
  7. ZYTIGA [Concomitant]

REACTIONS (1)
  - Death [None]
